FAERS Safety Report 21064833 (Version 1)
Quarter: 2022Q3

REPORT INFORMATION
  Report Type: Spontaneous
  Country: CA (occurrence: CA)
  Receive Date: 20220711
  Receipt Date: 20220711
  Transmission Date: 20221026
  Serious: Yes (Other)
  Sender: FDA-Public Use
  Company Number: CA-PFIZER INC-202200934658

PATIENT
  Sex: Female

DRUGS (3)
  1. EXEMESTANE [Suspect]
     Active Substance: EXEMESTANE
     Route: 065
  2. ANASTROZOLE [Suspect]
     Active Substance: ANASTROZOLE
     Route: 065
  3. LETROZOLE [Suspect]
     Active Substance: LETROZOLE
     Route: 065

REACTIONS (3)
  - Second primary malignancy [Unknown]
  - Ovarian cancer [Unknown]
  - Neoplasm progression [Unknown]
